FAERS Safety Report 25730964 (Version 2)
Quarter: 2025Q3

REPORT INFORMATION
  Report Type: Spontaneous
  Country: US (occurrence: US)
  Receive Date: 20250827
  Receipt Date: 20250922
  Transmission Date: 20251021
  Serious: Yes (Hospitalization)
  Sender: VANDA PHARMACEUTICALS
  Company Number: US-VANDA PHARMACEUTICALS, INC-2025ILOUS002067

PATIENT
  Age: 64 Year
  Sex: Female
  Weight: 79.365 kg

DRUGS (12)
  1. FANAPT [Suspect]
     Active Substance: ILOPERIDONE
     Indication: Bipolar I disorder
     Dosage: 6 MILLIGRAM, BID (DAY 15)
     Route: 065
     Dates: start: 202507, end: 20250725
  2. FANAPT [Suspect]
     Active Substance: ILOPERIDONE
     Dosage: 1 MILLIGRAM, QAM (DAY 1-DAY 2)
     Route: 065
     Dates: start: 20250626
  3. FANAPT [Suspect]
     Active Substance: ILOPERIDONE
     Dosage: 2 MILLIGRAM, QAM (DAY 3-DAY4)
     Route: 065
     Dates: start: 202506, end: 202506
  4. FANAPT [Suspect]
     Active Substance: ILOPERIDONE
     Dosage: 4 MILLIGRAM, QAM (DAY 5, DAY 6)
     Route: 065
     Dates: start: 202506
  5. FANAPT [Suspect]
     Active Substance: ILOPERIDONE
     Dosage: 4 MILLIGRAM, QAM (DAY 7 AND DAY 8)
     Route: 065
  6. FANAPT [Suspect]
     Active Substance: ILOPERIDONE
     Dosage: 4 MILLIGRAM, QAM (DAY 9 TO DAY 14)
     Route: 065
     Dates: start: 202507
  7. CAPLYTA [Concomitant]
     Active Substance: LUMATEPERONE
     Indication: Product used for unknown indication
     Dosage: 42 MILLIGRAM, QD (CROSS TAPER WITH FANAPT)
  8. CAPLYTA [Concomitant]
     Active Substance: LUMATEPERONE
  9. CAPLYTA [Concomitant]
     Active Substance: LUMATEPERONE
  10. EFFEXOR [Concomitant]
     Active Substance: VENLAFAXINE HYDROCHLORIDE
     Indication: Depression
     Dosage: 150 MILLIGRAM, QD
  11. XANAX [Concomitant]
     Active Substance: ALPRAZOLAM
     Indication: Anxiety
     Dosage: 1 MILLIGRAM, BID
  12. QUVIVIQ [Concomitant]
     Active Substance: DARIDOREXANT
     Indication: Sleep disorder
     Dosage: 25 MILLIGRAM, QHS

REACTIONS (2)
  - Rhabdomyolysis [Recovered/Resolved]
  - Dehydration [Unknown]

NARRATIVE: CASE EVENT DATE: 20250725
